FAERS Safety Report 25859278 (Version 1)
Quarter: 2025Q3

REPORT INFORMATION
  Report Type: Spontaneous
  Country: GB (occurrence: GB)
  Receive Date: 20250929
  Receipt Date: 20250929
  Transmission Date: 20251021
  Serious: Yes (Other)
  Sender: MYLAN
  Company Number: GB-JNJFOC-20250625782

PATIENT
  Age: 67 Year
  Sex: Female

DRUGS (16)
  1. POMALIDOMIDE [Suspect]
     Active Substance: POMALIDOMIDE
     Indication: Plasma cell myeloma refractory
  2. POMALIDOMIDE [Suspect]
     Active Substance: POMALIDOMIDE
     Route: 065
  3. POMALIDOMIDE [Suspect]
     Active Substance: POMALIDOMIDE
     Route: 065
  4. POMALIDOMIDE [Suspect]
     Active Substance: POMALIDOMIDE
  5. TOLODODEKIN ALFA [Suspect]
     Active Substance: TOLODODEKIN ALFA
     Indication: Plasma cell myeloma refractory
  6. TOLODODEKIN ALFA [Suspect]
     Active Substance: TOLODODEKIN ALFA
     Route: 065
  7. TOLODODEKIN ALFA [Suspect]
     Active Substance: TOLODODEKIN ALFA
     Route: 065
  8. TOLODODEKIN ALFA [Suspect]
     Active Substance: TOLODODEKIN ALFA
  9. CARFILZOMIB [Suspect]
     Active Substance: CARFILZOMIB
     Indication: Plasma cell myeloma refractory
  10. CARFILZOMIB [Suspect]
     Active Substance: CARFILZOMIB
     Route: 065
  11. CARFILZOMIB [Suspect]
     Active Substance: CARFILZOMIB
     Route: 065
  12. CARFILZOMIB [Suspect]
     Active Substance: CARFILZOMIB
  13. DEXAMETHASONE [Suspect]
     Active Substance: DEXAMETHASONE
     Indication: Plasma cell myeloma refractory
  14. DEXAMETHASONE [Suspect]
     Active Substance: DEXAMETHASONE
     Route: 065
  15. DEXAMETHASONE [Suspect]
     Active Substance: DEXAMETHASONE
     Route: 065
  16. DEXAMETHASONE [Suspect]
     Active Substance: DEXAMETHASONE

REACTIONS (7)
  - Pseudomonas infection [Unknown]
  - Foot fracture [Unknown]
  - Contusion [Unknown]
  - Pyrexia [Unknown]
  - Rhinovirus infection [Unknown]
  - Therapeutic product effect incomplete [Unknown]
  - Intentional product use issue [Unknown]
